FAERS Safety Report 7409105-4 (Version None)
Quarter: 2011Q2

REPORT INFORMATION
  Report Type: 
  Country: None (occurrence: None)
  Receive Date: 20110408
  Receipt Date: 20110408
  Transmission Date: 20111010
  Serious: No
  Sender: FDA-Public Use
  Company Number: None

PATIENT
  Age: 54 Year
  Sex: Male

DRUGS (1)
  1. AMOXICILLIN [Suspect]
     Dates: start: 20090317, end: 20090318

REACTIONS (20)
  - ERYTHEMA [None]
  - ALANINE AMINOTRANSFERASE INCREASED [None]
  - PRURITUS GENERALISED [None]
  - DECREASED APPETITE [None]
  - CONDITION AGGRAVATED [None]
  - ABDOMINAL PAIN UPPER [None]
  - BACK PAIN [None]
  - JAUNDICE [None]
  - EPIGASTRIC DISCOMFORT [None]
  - PYREXIA [None]
  - RASH MACULO-PAPULAR [None]
  - PROTEIN TOTAL INCREASED [None]
  - BLOOD BILIRUBIN INCREASED [None]
  - BILIRUBIN CONJUGATED INCREASED [None]
  - LIVER INJURY [None]
  - CHROMATURIA [None]
  - CHILLS [None]
  - URINE BILIRUBIN INCREASED [None]
  - ASPARTATE AMINOTRANSFERASE INCREASED [None]
  - BURNING SENSATION [None]
